FAERS Safety Report 5510086-9 (Version None)
Quarter: 2007Q4

REPORT INFORMATION
  Report Type: 
  Country: None (occurrence: None)
  Receive Date: 20071108
  Receipt Date: 20070912
  Transmission Date: 20080405
  Serious: No
  Sender: FDA-Public Use
  Company Number: US-ABBOTT-07P-163-0416870-00

PATIENT
  Age: 41 Year
  Sex: Female

DRUGS (1)
  1. TARKA [Suspect]
     Indication: HYPERTENSION

REACTIONS (6)
  - ASTHENIA [None]
  - COUGH [None]
  - FEELING ABNORMAL [None]
  - NERVOUSNESS [None]
  - PAIN [None]
  - PHARYNGOLARYNGEAL PAIN [None]
